FAERS Safety Report 6102949-0 (Version None)
Quarter: 2009Q1

REPORT INFORMATION
  Report Type: 
  Country: None (occurrence: None)
  Receive Date: 20090305
  Receipt Date: 20090219
  Transmission Date: 20090719
  Serious: Yes (Hospitalization, Other)
  Sender: FDA-Public Use
  Company Number: PHHY2009GB02869

PATIENT
  Sex: Male

DRUGS (11)
  1. CLOZARIL [Suspect]
     Indication: SCHIZOPHRENIA
     Dosage: 12.5 MG, QD
     Route: 048
  2. CLOZARIL [Suspect]
     Indication: PSYCHOTIC DISORDER
     Dosage: 37.5 MG, UNK
     Route: 048
     Dates: start: 20090105, end: 20090122
  3. CLOZARIL [Suspect]
     Indication: DEMENTIA
  4. NITRAZEPAM [Concomitant]
     Indication: INSOMNIA
     Dosage: 5 MG, QD
  5. SIMVASTATIN [Concomitant]
     Indication: HYPERCHOLESTEROLAEMIA
     Dosage: 20 MG, QD
  6. ASPIRIN [Concomitant]
     Dosage: 75 MG, QD
     Route: 048
  7. RIVASTIGMINE [Concomitant]
     Indication: DEMENTIA
     Dosage: 6 MG, BID
     Route: 048
  8. NULYTELY [Concomitant]
     Indication: CONSTIPATION
     Dosage: 1 DF DAILY
     Route: 048
  9. LACTULOSE [Concomitant]
     Indication: CONSTIPATION
     Dosage: 20 ML, BID
     Route: 048
  10. OXYTEMACYCLINE [Concomitant]
     Indication: INFECTION PROPHYLAXIS
     Dosage: 250 MG, BID
     Route: 048
  11. LORAZEPAM [Concomitant]
     Indication: ANXIETY
     Dosage: 2 MG DAILY
     Route: 048

REACTIONS (4)
  - CONDITION AGGRAVATED [None]
  - DEMENTIA [None]
  - DRUG INEFFECTIVE [None]
  - NEUTROPENIA [None]
